FAERS Safety Report 17931180 (Version 1)
Quarter: 2020Q2

REPORT INFORMATION
  Report Type: Report from Study
  Country: None (occurrence: US)
  Receive Date: 20200623
  Receipt Date: 20200623
  Transmission Date: 20200714
  Serious: Yes (Hospitalization, Other)
  Sender: FDA-Public Use
  Company Number: US-BIOVITRUM-2020US3201

PATIENT
  Sex: Female

DRUGS (1)
  1. KINERET [Suspect]
     Active Substance: ANAKINRA
     Indication: PULMONARY EMBOLISM
     Dates: start: 20200521

REACTIONS (4)
  - Blister [Unknown]
  - Off label use [Recovered/Resolved]
  - COVID-19 [Unknown]
  - Rash [Unknown]
